FAERS Safety Report 8320404-4 (Version None)
Quarter: 2012Q2

REPORT INFORMATION
  Report Type: 
  Country: None (occurrence: None)
  Receive Date: 20120426
  Receipt Date: 20120426
  Transmission Date: 20120825
  Serious: Yes (Hospitalization)
  Sender: FDA-Public Use
  Company Number: None

PATIENT
  Age: 81 Year
  Sex: Female
  Weight: 68.9467 kg

DRUGS (1)
  1. ARICEPT [Suspect]
     Indication: COGNITIVE DISORDER
     Dosage: 5 MG (1) AT NIGHT
     Dates: start: 20120307, end: 20120402

REACTIONS (8)
  - NAUSEA [None]
  - MUSCLE SPASMS [None]
  - NIGHTMARE [None]
  - DIARRHOEA [None]
  - ASTHENIA [None]
  - MALAISE [None]
  - BLOOD PRESSURE INCREASED [None]
  - SCREAMING [None]
